FAERS Safety Report 20177033 (Version 1)
Quarter: 2021Q4

REPORT INFORMATION
  Report Type: Spontaneous
  Country: US (occurrence: None)
  Receive Date: 20211211
  Receipt Date: 20211211
  Transmission Date: 20220304
  Serious: No
  Sender: FDA-Public Use
  Company Number: None

PATIENT
  Age: 46 Year
  Sex: Female
  Weight: 96.75 kg

DRUGS (1)
  1. QULIPTA [Suspect]
     Active Substance: ATOGEPANT

REACTIONS (6)
  - Nausea [None]
  - Fatigue [None]
  - Dizziness [None]
  - Fall [None]
  - Feeling abnormal [None]
  - Unevaluable event [None]

NARRATIVE: CASE EVENT DATE: 20211211
